FAERS Safety Report 24618906 (Version 2)
Quarter: 2024Q4

REPORT INFORMATION
  Report Type: Report from Study
  Country: CO (occurrence: CO)
  Receive Date: 20241114
  Receipt Date: 20241218
  Transmission Date: 20250115
  Serious: Yes (Hospitalization, Other)
  Sender: JOHNSON AND JOHNSON
  Company Number: CO-JNJFOC-20240936530

PATIENT
  Age: 60 Year
  Sex: Female
  Weight: 40 kg

DRUGS (7)
  1. INVEGA SUSTENNA [Suspect]
     Active Substance: PALIPERIDONE PALMITATE
     Indication: Schizophrenia
     Dosage: DATE OF LAST ADMINISTRATION: 14-NOV-2024
     Route: 030
     Dates: start: 20240726
  2. INVEGA SUSTENNA [Suspect]
     Active Substance: PALIPERIDONE PALMITATE
  3. INVEGA SUSTENNA [Suspect]
     Active Substance: PALIPERIDONE PALMITATE
  4. RISPERIDONE [Concomitant]
     Active Substance: RISPERIDONE
  5. VALPROIC ACID [Concomitant]
     Active Substance: VALPROIC ACID
  6. SERTRALINE [Concomitant]
     Active Substance: SERTRALINE HYDROCHLORIDE
  7. LOSARTAN [Concomitant]
     Active Substance: LOSARTAN

REACTIONS (11)
  - Schizophrenia [Not Recovered/Not Resolved]
  - Eating disorder [Unknown]
  - Aggression [Unknown]
  - Enuresis [Unknown]
  - Weight decreased [Unknown]
  - Chronic kidney disease [Not Recovered/Not Resolved]
  - Nephritic syndrome [Not Recovered/Not Resolved]
  - Vasculitis [Not Recovered/Not Resolved]
  - Drug dependence [Unknown]
  - Product prescribing error [Unknown]
  - Product dose omission issue [Unknown]

NARRATIVE: CASE EVENT DATE: 20240726
